FAERS Safety Report 8363699-3 (Version None)
Quarter: 2012Q2

REPORT INFORMATION
  Report Type: 
  Country: None (occurrence: None)
  Receive Date: 20120516
  Receipt Date: 20120511
  Transmission Date: 20120825
  Serious: Yes (Death)
  Sender: FDA-Public Use
  Company Number: US-JNJFOC-20120512579

PATIENT
  Sex: Female
  Weight: 63.5 kg

DRUGS (9)
  1. FENTANYL CITRATE [Suspect]
     Indication: NECK PAIN
     Route: 062
     Dates: start: 20090101
  2. XANAX [Concomitant]
     Indication: ANXIETY
     Route: 048
  3. DURAGESIC-100 [Suspect]
     Indication: BACK PAIN
     Route: 062
     Dates: start: 20090101, end: 20090101
  4. CELEBREX [Concomitant]
     Indication: ARTHRITIS
     Route: 048
  5. AN UNKNOWN MEDICATION [Suspect]
     Indication: PAIN
     Route: 030
     Dates: start: 20080101, end: 20090101
  6. FENTANYL CITRATE [Suspect]
     Indication: BACK PAIN
     Route: 062
     Dates: start: 20090101
  7. DURAGESIC-100 [Suspect]
     Indication: NECK PAIN
     Route: 062
     Dates: start: 20090101, end: 20090101
  8. XANAX [Concomitant]
     Indication: PANIC ATTACK
     Route: 048
  9. CYMBALTA [Concomitant]
     Indication: DEPRESSION
     Route: 048

REACTIONS (2)
  - DEATH [None]
  - WEIGHT INCREASED [None]
